FAERS Safety Report 6636829-9 (Version None)
Quarter: 2010Q1

REPORT INFORMATION
  Report Type: 
  Country: None (occurrence: None)
  Receive Date: 20100316
  Receipt Date: 20100305
  Transmission Date: 20100710
  Serious: Yes (Other)
  Sender: FDA-Public Use
  Company Number: US-JNJFOC-20100302382

PATIENT
  Sex: Female
  Weight: 112.95 kg

DRUGS (12)
  1. REMICADE [Suspect]
     Indication: RHEUMATOID ARTHRITIS
     Route: 042
  2. REMICADE [Suspect]
     Route: 042
  3. HUMALOG [Concomitant]
     Indication: DIABETES MELLITUS
     Dosage: DOSE: 20 UNITS
  4. LANTUS [Concomitant]
     Indication: DIABETES MELLITUS
     Dosage: DOSE: 80 UNITS
  5. PREVACID [Concomitant]
     Indication: GASTROOESOPHAGEAL REFLUX DISEASE
  6. DIOVAN [Concomitant]
     Indication: HYPERTENSION
  7. LISINOPRIL [Concomitant]
     Indication: HYPERTENSION
  8. METOPROLOL TARTRATE [Concomitant]
     Indication: HYPERTENSION
  9. HYDROCHLOROTHIAZIDE [Concomitant]
     Indication: DIURETIC THERAPY
  10. PROCARDIA [Concomitant]
     Indication: HYPERTENSION
  11. WELLBUTRIN [Concomitant]
     Indication: DEPRESSION
  12. PROZAC [Concomitant]
     Indication: DEPRESSION

REACTIONS (6)
  - DYSPNOEA [None]
  - HYPOAESTHESIA FACIAL [None]
  - HYPOAESTHESIA ORAL [None]
  - INFUSION RELATED REACTION [None]
  - OEDEMA PERIPHERAL [None]
  - PAIN IN EXTREMITY [None]
